FAERS Safety Report 7073865-5 (Version None)
Quarter: 2010Q4

REPORT INFORMATION
  Report Type: 
  Country: None (occurrence: None)
  Receive Date: 20101029
  Receipt Date: 20100827
  Transmission Date: 20110411
  Serious: No
  Sender: FDA-Public Use
  Company Number: A0878117A

PATIENT
  Age: 55 Year
  Sex: Female

DRUGS (11)
  1. ADVAIR DISKUS 100/50 [Suspect]
     Indication: CHRONIC OBSTRUCTIVE PULMONARY DISEASE
     Dosage: 1PUFF TWICE PER DAY
     Route: 055
     Dates: start: 20080101, end: 20100813
  2. SPIRIVA [Concomitant]
  3. ALBUTEROL [Concomitant]
  4. NIFEDIPINE [Concomitant]
  5. LYRICA [Concomitant]
  6. LASIX [Concomitant]
  7. POTASSIUM CHLORIDE [Concomitant]
  8. DIOVAN [Concomitant]
  9. MOBID [Concomitant]
  10. ASCORBIC ACID [Concomitant]
  11. PERCOCET [Concomitant]

REACTIONS (2)
  - DYSGEUSIA [None]
  - DYSPEPSIA [None]
